FAERS Safety Report 17284457 (Version 2)
Quarter: 2020Q1

REPORT INFORMATION
  Report Type: Report from Study
  Country: CA (occurrence: CA)
  Receive Date: 20200117
  Receipt Date: 20200122
  Transmission Date: 20200409
  Serious: No
  Sender: FDA-Public Use
  Company Number: CA-JNJFOC-20200112461

PATIENT
  Age: 54 Year
  Sex: Male
  Weight: 88 kg

DRUGS (1)
  1. TREMFYA [Suspect]
     Active Substance: GUSELKUMAB
     Indication: PSORIASIS
     Route: 058
     Dates: start: 20191220

REACTIONS (1)
  - Pityriasis rosea [Not Recovered/Not Resolved]

NARRATIVE: CASE EVENT DATE: 20200107
